FAERS Safety Report 20914528 (Version 1)
Quarter: 2022Q2

REPORT INFORMATION
  Report Type: Spontaneous
  Country: US (occurrence: US)
  Receive Date: 20220604
  Receipt Date: 20220604
  Transmission Date: 20220721
  Serious: No
  Sender: FDA-Public Use
  Company Number: US-SA-SAC20220523001676

PATIENT
  Age: 9 Year
  Sex: Female

DRUGS (1)
  1. DUPIXENT [Suspect]
     Active Substance: DUPILUMAB
     Indication: Dermatitis atopic
     Dosage: 400 MG
     Route: 058
     Dates: start: 202205

REACTIONS (3)
  - Product use issue [Unknown]
  - Device use issue [Unknown]
  - Off label use of device [Unknown]

NARRATIVE: CASE EVENT DATE: 20220519
